FAERS Safety Report 6730153-1 (Version None)
Quarter: 2010Q2

REPORT INFORMATION
  Report Type: 
  Country: None (occurrence: None)
  Receive Date: 20100518
  Receipt Date: 20100506
  Transmission Date: 20101027
  Serious: Yes (Other)
  Sender: FDA-Public Use
  Company Number: US-JNJFOC-20100502978

PATIENT
  Age: 2 Year
  Sex: Female

DRUGS (2)
  1. CHILDREN'S TYLENOL LIQUID CHERRY [Suspect]
     Route: 048
  2. CHILDREN'S TYLENOL LIQUID CHERRY [Suspect]
     Indication: PYREXIA
     Dosage: 320 MG EVERY 4-6 HOURS
     Route: 048

REACTIONS (5)
  - DEHYDRATION [None]
  - DIARRHOEA [None]
  - PRODUCT QUALITY ISSUE [None]
  - PYREXIA [None]
  - VOMITING [None]
